FAERS Safety Report 6518696-7 (Version None)
Quarter: 2009Q4

REPORT INFORMATION
  Report Type: 
  Country: None (occurrence: None)
  Receive Date: 20091228
  Receipt Date: 20091217
  Transmission Date: 20100525
  Serious: Yes (Other)
  Sender: FDA-Public Use
  Company Number: FR-ROCHE-675715

PATIENT
  Age: 7 Year
  Sex: Female
  Weight: 22.5 kg

DRUGS (1)
  1. TAMIFLU [Suspect]
     Indication: DRUG THERAPY
     Route: 048
     Dates: end: 20091216

REACTIONS (4)
  - CONVULSION [None]
  - EPISTAXIS [None]
  - MALAISE [None]
  - MOUTH HAEMORRHAGE [None]
